FAERS Safety Report 14354253 (Version 2)
Quarter: 2018Q2

REPORT INFORMATION
  Report Type: Spontaneous
  Country: FR (occurrence: FR)
  Receive Date: 20180105
  Receipt Date: 20180504
  Transmission Date: 20180711
  Serious: Yes (Other)
  Sender: FDA-Public Use
  Company Number: FR-MERCK KGAA-2038466

PATIENT
  Age: 43 Year
  Sex: Female

DRUGS (2)
  1. NOVOTHYROX [Suspect]
     Active Substance: LEVOTHYROXINE SODIUM
     Indication: PRODUCT USED FOR UNKNOWN INDICATION
     Dates: start: 20170509
  2. NOVOTHYROX [Suspect]
     Active Substance: LEVOTHYROXINE SODIUM
     Dates: start: 20170509

REACTIONS (16)
  - Headache [None]
  - Fatigue [None]
  - Nervousness [None]
  - Alopecia [None]
  - Irritability [None]
  - Loss of libido [None]
  - Insomnia [Not Recovered/Not Resolved]
  - Asthenia [None]
  - Gait disturbance [None]
  - Back pain [None]
  - Muscle twitching [None]
  - Anxiety [None]
  - Loss of personal independence in daily activities [None]
  - Bone pain [None]
  - Decreased activity [None]
  - Impaired work ability [None]

NARRATIVE: CASE EVENT DATE: 2017
